FAERS Safety Report 7094399-8 (Version None)
Quarter: 2010Q4

REPORT INFORMATION
  Report Type: 
  Country: None (occurrence: None)
  Receive Date: 20101110
  Receipt Date: 20101026
  Transmission Date: 20110411
  Serious: Yes (Hospitalization)
  Sender: FDA-Public Use
  Company Number: PHHY2010FR73131

PATIENT
  Sex: Female

DRUGS (8)
  1. TEGRETOL [Suspect]
     Indication: EPILEPSY
     Dosage: 200 MG, DAILY
     Route: 048
  2. ANAFRANIL [Suspect]
     Dosage: 25 MG, BID
     Route: 048
     Dates: start: 20080101
  3. ANAFRANIL [Suspect]
     Dosage: 2 DF IN THE EVENING
     Route: 048
  4. HYZAAR [Suspect]
     Indication: HYPERTENSION
     Dosage: UNK
  5. AMLOR [Suspect]
     Indication: HYPERTENSION
     Dosage: 10 MG, QD
     Route: 048
  6. EZETROL [Concomitant]
     Indication: DYSLIPIDAEMIA
     Dosage: 10 MG, QD
  7. CRESTOR [Concomitant]
     Indication: DYSLIPIDAEMIA
     Dosage: 10 MG, QD
  8. OMEPRAZOLE [Concomitant]
     Dosage: 20 MG, QD

REACTIONS (2)
  - BLOOD PRESSURE INCREASED [None]
  - MALAISE [None]
